FAERS Safety Report 7971152-1 (Version None)
Quarter: 2011Q4

REPORT INFORMATION
  Report Type: 
  Country: None (occurrence: None)
  Receive Date: 20111212
  Receipt Date: 20111206
  Transmission Date: 20120403
  Serious: Yes (Other)
  Sender: FDA-Public Use
  Company Number: US-AMGEN-USASP2011064979

PATIENT
  Age: 64 Year
  Sex: Female

DRUGS (1)
  1. ENBREL [Suspect]
     Indication: PSORIATIC ARTHROPATHY
     Dosage: 25 MG, UNK
     Dates: start: 20040301

REACTIONS (6)
  - CATARACT [None]
  - SKIN INJURY [None]
  - WHEEZING [None]
  - GINGIVAL BLEEDING [None]
  - NASAL SEPTUM DEVIATION [None]
  - INJECTION SITE PAIN [None]
